FAERS Safety Report 24339521 (Version 5)
Quarter: 2025Q2

REPORT INFORMATION
  Report Type: Report from Study
  Country: CA (occurrence: CA)
  Receive Date: 20240919
  Receipt Date: 20250626
  Transmission Date: 20250716
  Serious: Yes (Other)
  Sender: TAKEDA
  Company Number: CA-TAKEDA-2024TUS050726

PATIENT
  Sex: Female

DRUGS (10)
  1. VEDOLIZUMAB [Suspect]
     Active Substance: VEDOLIZUMAB
     Indication: Colitis ulcerative
  2. VEDOLIZUMAB [Suspect]
     Active Substance: VEDOLIZUMAB
  3. VEDOLIZUMAB [Suspect]
     Active Substance: VEDOLIZUMAB
  4. VEDOLIZUMAB [Suspect]
     Active Substance: VEDOLIZUMAB
  5. VEDOLIZUMAB [Suspect]
     Active Substance: VEDOLIZUMAB
  6. PENTASA [Concomitant]
     Active Substance: MESALAMINE
  7. IRON [Concomitant]
     Active Substance: IRON
  8. RIVAROXABAN [Concomitant]
     Active Substance: RIVAROXABAN
  9. ATORVASTATIN [Concomitant]
     Active Substance: ATORVASTATIN
  10. RABEPRAZOLE SODIUM [Concomitant]
     Active Substance: RABEPRAZOLE SODIUM

REACTIONS (7)
  - Colitis ulcerative [Not Recovered/Not Resolved]
  - Blood iron decreased [Not Recovered/Not Resolved]
  - Haemoglobin decreased [Not Recovered/Not Resolved]
  - Drug effect less than expected [Unknown]
  - Hernia pain [Unknown]
  - Ocular hyperaemia [Recovering/Resolving]
  - Ocular discomfort [Recovering/Resolving]
